FAERS Safety Report 24725463 (Version 2)
Quarter: 2024Q4

REPORT INFORMATION
  Report Type: Spontaneous
  Country: CA (occurrence: CA)
  Receive Date: 20241212
  Receipt Date: 20241217
  Transmission Date: 20250115
  Serious: Yes (Other)
  Sender: RANBAXY
  Company Number: CA-SUN PHARMACEUTICAL INDUSTRIES LTD-2024R1-483906

PATIENT
  Age: 43 Year
  Sex: Female

DRUGS (3)
  1. REPAGLINIDE [Interacting]
     Active Substance: DULOXETINE HYDROCHLORIDE\REPAGLINIDE\TICAGRELOR
     Indication: Cystic fibrosis related diabetes
     Dosage: 8-12 MG PER DAY
     Route: 065
  2. REPAGLINIDE [Interacting]
     Active Substance: DULOXETINE HYDROCHLORIDE\REPAGLINIDE\TICAGRELOR
     Dosage: 16 MG PER DAY
     Route: 065
  3. ELEXACAFTOR\IVACAFTOR\TEZACAFTOR [Suspect]
     Active Substance: ELEXACAFTOR\IVACAFTOR\TEZACAFTOR
     Indication: Cystic fibrosis related diabetes
     Dosage: UNK
     Route: 065

REACTIONS (1)
  - Drug interaction [Unknown]
